FAERS Safety Report 18161306 (Version 4)
Quarter: 2020Q3

REPORT INFORMATION
  Report Type: Report from Study
  Country: CA (occurrence: CA)
  Receive Date: 20200818
  Receipt Date: 20200918
  Transmission Date: 20201103
  Serious: Yes (Hospitalization, Other)
  Sender: FDA-Public Use
  Company Number: PHHY2019CA118646

PATIENT
  Age: 62 Year
  Sex: Female

DRUGS (1)
  1. ERELZI [Suspect]
     Active Substance: ETANERCEPT-SZZS
     Indication: RHEUMATOID ARTHRITIS
     Dosage: 50 MG, QW
     Route: 058
     Dates: start: 20190513

REACTIONS (11)
  - Product dose omission issue [Unknown]
  - Cardiac dysfunction [Unknown]
  - Dizziness [Recovered/Resolved]
  - Malaise [Unknown]
  - Pain in extremity [Unknown]
  - Paraesthesia [Recovered/Resolved]
  - Hypoaesthesia [Recovered/Resolved]
  - Myocardial infarction [Unknown]
  - Cardiac failure congestive [Unknown]
  - Musculoskeletal disorder [Unknown]
  - Polyp [Unknown]

NARRATIVE: CASE EVENT DATE: 202007
